FAERS Safety Report 6597639-4 (Version None)
Quarter: 2010Q1

REPORT INFORMATION
  Report Type: 
  Country: None (occurrence: None)
  Receive Date: 20100219
  Receipt Date: 20100219
  Transmission Date: 20100710
  Serious: Yes (Life-Threatening)
  Sender: FDA-Public Use
  Company Number: None

PATIENT
  Age: 61 Year
  Sex: Male

DRUGS (4)
  1. PIPERACILLIN AND TAZOBACTAM [Suspect]
     Indication: INFECTION
     Dosage: 2.25 GRAMS Q8H IV DRIP
     Route: 041
     Dates: start: 20090723, end: 20090804
  2. VANCOMYCIN [Concomitant]
  3. DOXERCALCIFEROL [Concomitant]
  4. EPOETIN [Concomitant]

REACTIONS (1)
  - ANAPHYLACTIC REACTION [None]
